FAERS Safety Report 4409730-9 (Version None)
Quarter: 2004Q3

REPORT INFORMATION
  Report Type: 
  Country: None (occurrence: None)
  Receive Date: 20040723
  Receipt Date: 20040719
  Transmission Date: 20050211
  Serious: Yes (Hospitalization)
  Sender: FDA-Public Use
  Company Number: KII-2001-0004213

PATIENT
  Sex: Female

DRUGS (1)
  1. OXYCONTIN [Suspect]

REACTIONS (1)
  - DETOXIFICATION [None]
